FAERS Safety Report 26100191 (Version 1)
Quarter: 2025Q4

REPORT INFORMATION
  Report Type: Spontaneous
  Country: GB (occurrence: None)
  Receive Date: 20251128
  Receipt Date: 20251128
  Transmission Date: 20260118
  Serious: Yes (Other)
  Sender: AUROBINDO
  Company Number: GB-MHRA-MED-202511141132384730-CGWJQ

PATIENT
  Age: 69 Year
  Sex: Female
  Weight: 93 kg

DRUGS (4)
  1. ATORVASTATIN [Suspect]
     Active Substance: ATORVASTATIN
     Indication: Blood cholesterol increased
     Dosage: UNK
     Route: 065
  2. Edexaban 60mg [Concomitant]
     Indication: Arrhythmia
     Dosage: 60 MILLIGRAM
     Route: 065
  3. LEVOTHYROXINE [Concomitant]
     Active Substance: LEVOTHYROXINE
     Indication: Hypothyroidism
     Dosage: 100 MILLIGRAM
     Route: 065
  4. SEMAGLUTIDE 7mg [Concomitant]
     Indication: Product used for unknown indication
     Dosage: 7 MILLIGRAM
     Route: 065

REACTIONS (3)
  - Urge incontinence [Recovering/Resolving]
  - Asthenia [Unknown]
  - Emotional distress [Unknown]

NARRATIVE: CASE EVENT DATE: 20190101
